FAERS Safety Report 5451865-6 (Version None)
Quarter: 2007Q3

REPORT INFORMATION
  Report Type: 
  Country: None (occurrence: None)
  Receive Date: 20070912
  Receipt Date: 20070829
  Transmission Date: 20080115
  Serious: Yes (Hospitalization)
  Sender: FDA-Public Use
  Company Number: 2007001594

PATIENT
  Age: 73 Year
  Sex: Male

DRUGS (4)
  1. ERLOTINIB (TABLET) (ERLOTINIB HCL) [Suspect]
     Indication: NON-SMALL CELL LUNG CANCER
     Dosage: 150 MG (QD), ORAL
     Route: 048
     Dates: start: 20061213, end: 20070430
  2. BEVACIZUMB (INJECTION FOR INFUSION) [Suspect]
     Indication: NON-SMALL CELL LUNG CANCER
     Dosage: 1185 MG (Q3W), INTRAVENOUS
     Route: 042
     Dates: start: 20061213, end: 20070530
  3. CISPLATIN [Suspect]
     Indication: NON-SMALL CELL LUNG CANCER
     Dosage: 160 MG (Q3W), INTRAVENOUS
     Route: 042
     Dates: start: 20070705, end: 20070731
  4. GEMCITABINE (GEMCITABINE) (INJECTI9ON FOR INFUSION) [Suspect]
     Indication: NON-SMALL CELL LUNG CANCER
     Dosage: 2500 MG (Q3W), INTRAVENOUS
     Route: 042
     Dates: start: 20070705, end: 20070809

REACTIONS (3)
  - BURSITIS [None]
  - DRUG TOXICITY [None]
  - SUPERINFECTION [None]
